FAERS Safety Report 10009652 (Version 1)
Quarter: 2014Q1

REPORT INFORMATION
  Report Type: Spontaneous
  Country: US (occurrence: US)
  Receive Date: 20140312
  Receipt Date: 20140312
  Transmission Date: 20141002
  Serious: No
  Sender: FDA-Public Use
  Company Number: US-INCYTE CORPORATION-2012IN002282

PATIENT
  Age: 80 Year
  Sex: Male

DRUGS (3)
  1. JAKAFI [Suspect]
     Dosage: 15 MG, QD
     Route: 048
     Dates: start: 20120409
  2. PROCRIT [Concomitant]
  3. HYDREA [Concomitant]

REACTIONS (3)
  - Diarrhoea [Unknown]
  - Road traffic accident [Unknown]
  - Nephrolithiasis [Unknown]
